FAERS Safety Report 9632161 (Version 2)
Quarter: 2014Q1

REPORT INFORMATION
  Report Type: Spontaneous
  Country: GB (occurrence: None)
  Receive Date: 20131016
  Receipt Date: 20140225
  Transmission Date: 20141002
  Serious: Yes (Other)
  Sender: FDA-Public Use
  Company Number: GB-DEXPHARM-20130707

PATIENT
  Age: 60 Year
  Sex: Female

DRUGS (8)
  1. OMEPRAZOLE [Suspect]
     Indication: GASTROOESOPHAGEAL REFLUX DISEASE
     Dosage: 1DF DOSAGE FORM SEP. DOSAGES/INTERVAL; 1 IN 1 DAYS CUMULATIVE DOSE; 2.0 DF DOSAGE FORM
     Route: 048
     Dates: start: 20130918, end: 20130920
  2. ALENDRONIC ACID [Concomitant]
  3. AMITRIPTYLINE [Concomitant]
  4. CITALOPRAM [Concomitant]
  5. MONTELUKAST [Concomitant]
  6. SALBUTAMOL [Concomitant]
  7. SERETIDE [Concomitant]
  8. SLO-PHYLLIN [Concomitant]

REACTIONS (6)
  - Pruritus [None]
  - Erythema [None]
  - Sleep disorder [None]
  - Rash generalised [None]
  - Rash [None]
  - Pain of skin [None]
